FAERS Safety Report 18243225 (Version 1)
Quarter: 2020Q3

REPORT INFORMATION
  Report Type: Spontaneous
  Country: HU (occurrence: HU)
  Receive Date: 20200908
  Receipt Date: 20200908
  Transmission Date: 20201103
  Serious: Yes (Other)
  Sender: FDA-Public Use
  Company Number: HU-JNJFOC-20200904233

PATIENT
  Age: 75 Year
  Sex: Female

DRUGS (7)
  1. RIVAROXABAN [Suspect]
     Active Substance: RIVAROXABAN
     Indication: CEREBROVASCULAR ACCIDENT PROPHYLAXIS
     Route: 048
  2. VITAMIN D3 [Concomitant]
     Active Substance: CHOLECALCIFEROL
     Dosage: UNK
  3. CONCOR [Concomitant]
     Active Substance: BISOPROLOL FUMARATE
     Dosage: 5 MG, BID
  4. CAVINTON FORTE [Concomitant]
     Active Substance: VINPOCETINE
     Dosage: 1 DF, TID
  5. LETROX [Concomitant]
     Active Substance: LEVOTHYROXINE SODIUM
     Dosage: 75 UG, UNK
  6. INDAPAMIDE. [Concomitant]
     Active Substance: INDAPAMIDE
     Dosage: 1.5 MG, UNK
  7. FAMOTIDINE. [Concomitant]
     Active Substance: FAMOTIDINE
     Dosage: 20 MG, BID

REACTIONS (9)
  - Pruritus [Unknown]
  - Ocular vascular disorder [Unknown]
  - Supraventricular tachycardia [Unknown]
  - Haematuria [Unknown]
  - Atrial fibrillation [Recovered/Resolved]
  - Angina unstable [Recovered/Resolved]
  - Dyspnoea [Unknown]
  - Chest pain [Recovered/Resolved]
  - Myocardial ischaemia [Unknown]
